FAERS Safety Report 7208061-1 (Version None)
Quarter: 2011Q1

REPORT INFORMATION
  Report Type: 
  Country: None (occurrence: None)
  Receive Date: 20110104
  Receipt Date: 20110103
  Transmission Date: 20110831
  Serious: No
  Sender: FDA-Public Use
  Company Number: US-PFIZER INC-US-WYE-H14447910

PATIENT
  Sex: Female
  Weight: 68 kg

DRUGS (4)
  1. SYNTHROID [Concomitant]
  2. EFFEXOR [Suspect]
     Indication: CATAPLEXY
     Dosage: 37.5 MG, 1X/DAY
     Route: 048
     Dates: start: 20100306, end: 20100306
  3. XOPENEX [Concomitant]
  4. SINGULAIR [Concomitant]

REACTIONS (2)
  - ASTHMA [None]
  - NAUSEA [None]
